FAERS Safety Report 11600934 (Version 1)
Quarter: 2015Q4

REPORT INFORMATION
  Report Type: Spontaneous
  Country: US (occurrence: US)
  Receive Date: 20151006
  Receipt Date: 20151006
  Transmission Date: 20160304
  Serious: No
  Sender: FDA-Public Use
  Company Number: US-AMGEN-USASP2015009002

PATIENT
  Age: 38 Year
  Sex: Female

DRUGS (3)
  1. PROLIA [Suspect]
     Active Substance: DENOSUMAB
     Indication: FRACTURE
  2. PROLIA [Suspect]
     Active Substance: DENOSUMAB
     Indication: THYROIDITIS
  3. PROLIA [Suspect]
     Active Substance: DENOSUMAB
     Indication: OSTEOPENIA
     Dosage: UNK
     Route: 065

REACTIONS (4)
  - Pain in jaw [Unknown]
  - Mastication disorder [Unknown]
  - Arthralgia [Unknown]
  - Gait disturbance [Unknown]
